FAERS Safety Report 10960834 (Version 1)
Quarter: 2015Q1

REPORT INFORMATION
  Report Type: Spontaneous
  Country: US (occurrence: None)
  Receive Date: 20150326
  Receipt Date: 20150326
  Transmission Date: 20150721
  Serious: Yes (Other)
  Sender: FDA-Public Use
  Company Number: None

PATIENT
  Sex: Female
  Weight: 77.3 kg

DRUGS (1)
  1. CIPRO [Suspect]
     Active Substance: CIPROFLOXACIN HYDROCHLORIDE
     Indication: URINARY TRACT INFECTION

REACTIONS (10)
  - Urinary tract infection [None]
  - Arthralgia [None]
  - Muscle spasms [None]
  - Stomatitis [None]
  - Bladder pain [None]
  - Tendon pain [None]
  - Muscle strain [None]
  - Myalgia [None]
  - Depressed level of consciousness [None]
  - Activities of daily living impaired [None]
